FAERS Safety Report 25169574 (Version 2)
Quarter: 2025Q3

REPORT INFORMATION
  Report Type: Spontaneous
  Country: CA (occurrence: CA)
  Receive Date: 20250407
  Receipt Date: 20250821
  Transmission Date: 20251020
  Serious: Yes (Life-Threatening, Hospitalization, Other)
  Sender: BAUSCH AND LOMB
  Company Number: CA-BAUSCH-BL-2025-004561

PATIENT
  Sex: Male

DRUGS (15)
  1. HYDROCORTISONE [Suspect]
     Active Substance: HYDROCORTISONE
     Indication: Product used for unknown indication
     Dosage: NOT SPECIFIED
     Route: 064
  2. HYDROCORTISONE [Suspect]
     Active Substance: HYDROCORTISONE
     Dosage: NOT SPECIFIED
     Route: 063
  3. BUDESONIDE\FORMOTEROL FUMARATE [Suspect]
     Active Substance: BUDESONIDE\FORMOTEROL FUMARATE
     Indication: Product used for unknown indication
     Dosage: FREQUENCY - 1 EVERY .5 DAYS
     Route: 064
  4. BUDESONIDE\FORMOTEROL FUMARATE [Suspect]
     Active Substance: BUDESONIDE\FORMOTEROL FUMARATE
     Dosage: FREQUENCY - 1 EVERY .5 DAYS
     Route: 063
  5. ORENCIA [Suspect]
     Active Substance: ABATACEPT
     Indication: Product used for unknown indication
     Route: 064
  6. ORENCIA [Suspect]
     Active Substance: ABATACEPT
     Route: 064
  7. ORENCIA [Suspect]
     Active Substance: ABATACEPT
     Route: 063
  8. PREDNISONE [Suspect]
     Active Substance: PREDNISONE
     Indication: Product used for unknown indication
     Route: 064
  9. PREDNISONE [Suspect]
     Active Substance: PREDNISONE
     Route: 063
  10. METOPROLOL [Suspect]
     Active Substance: METOPROLOL
     Indication: Product used for unknown indication
     Route: 064
  11. FLORINEF ACETATE [Suspect]
     Active Substance: FLUDROCORTISONE ACETATE
     Indication: Product used for unknown indication
     Route: 063
  12. FLORINEF ACETATE [Suspect]
     Active Substance: FLUDROCORTISONE ACETATE
     Route: 064
  13. CALCIUM CARBONATE [Concomitant]
     Active Substance: CALCIUM CARBONATE
     Indication: Product used for unknown indication
     Dosage: NOT SPECIFIED, FREQUENCY - 1 EVERY .3 WEEKS
     Route: 064
  14. CYANOCOBALAMIN [Concomitant]
     Active Substance: CYANOCOBALAMIN
     Indication: Product used for unknown indication
     Route: 064
  15. VITAMIN D [Concomitant]
     Active Substance: VITAMIN D NOS
     Indication: Product used for unknown indication
     Route: 064

REACTIONS (5)
  - Blood bilirubin increased [Recovered/Resolved]
  - Hypoglycaemia neonatal [Recovered/Resolved]
  - Thrombocytopenia neonatal [Recovered/Resolved]
  - Exposure via breast milk [Recovered/Resolved]
  - Foetal exposure during pregnancy [Recovered/Resolved]
